FAERS Safety Report 10751682 (Version 1)
Quarter: 2015Q1

REPORT INFORMATION
  Report Type: Spontaneous
  Country: MY (occurrence: None)
  Receive Date: 20150128
  Receipt Date: 20150128
  Transmission Date: 20150721
  Serious: Yes (Other)
  Sender: FDA-Public Use
  Company Number: FK201500387

PATIENT
  Age: 69 Year
  Sex: Female
  Weight: 52.5 kg

DRUGS (2)
  1. OXALIPLATIN 5MG/ML CONCENTRATE FOR SOLUTION FOR INFUSION (OXALIPLATIN) (OXALIPLATIN) [Suspect]
     Active Substance: OXALIPLATIN
     Indication: ADENOCARCINOMA OF COLON
     Dosage: 190 MG, OVER 2 HOURS
     Dates: start: 20150108
  2. CAPECITABINE (CAPECITABINE) (CAPECITABINE) [Concomitant]
     Active Substance: CAPECITABINE

REACTIONS (5)
  - Chest discomfort [None]
  - Heart rate increased [None]
  - Dyspnoea [None]
  - Blood pressure increased [None]
  - Dysphonia [None]

NARRATIVE: CASE EVENT DATE: 20150108
